FAERS Safety Report 4975595-X (Version None)
Quarter: 2006Q2

REPORT INFORMATION
  Report Type: 
  Country: None (occurrence: None)
  Receive Date: 20060411
  Receipt Date: 20060330
  Transmission Date: 20061013
  Serious: Yes (Other)
  Sender: FDA-Public Use
  Company Number: DEWYE520030MAR06

PATIENT
  Age: 43 Year
  Sex: Female

DRUGS (3)
  1. TREVILOR [Suspect]
     Dosage: SEE IMAGE, ORAL
     Route: 048
     Dates: start: 20050627, end: 20050804
  2. TREVILOR [Suspect]
     Dosage: SEE IMAGE, ORAL
     Route: 048
     Dates: start: 20050805, end: 20051103
  3. ZYPREXA [Suspect]
     Indication: SCHIZOPHRENIA
     Dosage: 12.5 MG PER DAY, ORAL
     Route: 048
     Dates: start: 20000101

REACTIONS (2)
  - ALANINE AMINOTRANSFERASE INCREASED [None]
  - GAMMA-GLUTAMYLTRANSFERASE INCREASED [None]
